FAERS Safety Report 6914320-X (Version None)
Quarter: 2010Q3

REPORT INFORMATION
  Report Type: 
  Country: None (occurrence: None)
  Receive Date: 20100804
  Receipt Date: 20100804
  Transmission Date: 20110219
  Serious: Yes (Disabling)
  Sender: FDA-Public Use
  Company Number: None

PATIENT
  Age: 51 Year
  Sex: Male
  Weight: 143.3367 kg

DRUGS (1)
  1. NIASPAN [Suspect]
     Indication: BLOOD CHOLESTEROL
     Dosage: 1 DAY
     Dates: start: 20080501, end: 20081101

REACTIONS (6)
  - BLISTER [None]
  - DYSPEPSIA [None]
  - HAEMORRHAGE [None]
  - IMPAIRED HEALING [None]
  - SKIN EXFOLIATION [None]
  - UNEVALUABLE EVENT [None]
